FAERS Safety Report 5151368-2 (Version None)
Quarter: 2006Q4

REPORT INFORMATION
  Report Type: 
  Country: None (occurrence: None)
  Receive Date: 20061114
  Receipt Date: 20061114
  Transmission Date: 20070319
  Serious: Yes (Other)
  Sender: FDA-Public Use
  Company Number: None

PATIENT
  Age: 36 Year
  Sex: Male
  Weight: 96.6162 kg

DRUGS (1)
  1. EQUATE PAIN RELIVER EXTRA STRENGTH 500 MG PERRIGO [Suspect]
     Indication: HEADACHE
     Dosage: 500 MG EVERY 4 HOURS EVERY FOUR HOURS
     Dates: start: 20060920, end: 20061111

REACTIONS (5)
  - ABDOMINAL PAIN UPPER [None]
  - GASTRIC DISORDER [None]
  - NAUSEA [None]
  - PHARMACEUTICAL PRODUCT COMPLAINT [None]
  - POOR QUALITY DRUG ADMINISTERED [None]
